FAERS Safety Report 6870496-4 (Version None)
Quarter: 2010Q3

REPORT INFORMATION
  Report Type: 
  Country: None (occurrence: None)
  Receive Date: 20100723
  Receipt Date: 20100714
  Transmission Date: 20110219
  Serious: No
  Sender: FDA-Public Use
  Company Number: US-BIOGENIDEC-2010BI023708

PATIENT
  Age: 45 Year
  Sex: Female

DRUGS (2)
  1. AVONEX [Suspect]
     Indication: MULTIPLE SCLEROSIS
     Route: 030
     Dates: start: 20100508, end: 20100605
  2. AVONEX [Suspect]
     Route: 030
     Dates: start: 20100623

REACTIONS (8)
  - ARTHRALGIA [None]
  - ASTHENIA [None]
  - BLINDNESS UNILATERAL [None]
  - HYPOAESTHESIA [None]
  - INFLUENZA LIKE ILLNESS [None]
  - MUSCLE TIGHTNESS [None]
  - NERVE COMPRESSION [None]
  - THROMBOSIS [None]
